FAERS Safety Report 6771747-7 (Version None)
Quarter: 2010Q2

REPORT INFORMATION
  Report Type: 
  Country: None (occurrence: None)
  Receive Date: 20100616
  Receipt Date: 20090429
  Transmission Date: 20101027
  Serious: No
  Sender: FDA-Public Use
  Company Number: US-ASTRAZENECA-2009UW02328

PATIENT
  Sex: Female
  Weight: 68 kg

DRUGS (3)
  1. ATACAND [Suspect]
     Indication: HYPERTENSION
     Route: 048
     Dates: start: 19990101
  2. SYNTHROID [Concomitant]
     Indication: HYPOTHYROIDISM
  3. DIAZAPAM [Concomitant]

REACTIONS (1)
  - ORAL DISCOMFORT [None]
